FAERS Safety Report 7904081-X (Version None)
Quarter: 2011Q4

REPORT INFORMATION
  Report Type: 
  Country: None (occurrence: None)
  Receive Date: 20111109
  Receipt Date: 20111107
  Transmission Date: 20120403
  Serious: Yes (Other)
  Sender: FDA-Public Use
  Company Number: JP-PFIZER INC-2011272108

PATIENT
  Age: 28 Year
  Sex: Male

DRUGS (4)
  1. ZITHROMAX [Suspect]
     Indication: OROPHARYNGEAL PAIN
     Dosage: 2000 MG, SINGLE
     Route: 048
     Dates: start: 20111102, end: 20111102
  2. DEXTROMETHORPHAN HYDROBROMIDE [Concomitant]
     Dosage: UNK
     Route: 048
     Dates: start: 20111031
  3. TRANEXAMIC ACID [Concomitant]
     Dosage: UNK
     Route: 048
     Dates: start: 20111031
  4. ZITHROMAX [Suspect]
     Indication: COUGH

REACTIONS (1)
  - SHOCK [None]
